FAERS Safety Report 25394120 (Version 3)
Quarter: 2025Q2

REPORT INFORMATION
  Report Type: Report from Study
  Country: AR (occurrence: AR)
  Receive Date: 20250604
  Receipt Date: 20250626
  Transmission Date: 20250716
  Serious: Yes (Hospitalization, Other)
  Sender: TAKEDA
  Company Number: AR-TAKEDA-2025TUS051506

PATIENT
  Sex: Male
  Weight: 22 kg

DRUGS (3)
  1. IDURSULFASE [Suspect]
     Active Substance: IDURSULFASE
     Indication: Mucopolysaccharidosis II
     Dosage: 12 MILLIGRAM, 1/WEEK
     Dates: start: 20230119
  2. IDURSULFASE [Suspect]
     Active Substance: IDURSULFASE
     Dosage: UNK UNK, 1/WEEK
  3. IDURSULFASE [Suspect]
     Active Substance: IDURSULFASE
     Dosage: 12 MILLIGRAM, 1/WEEK

REACTIONS (1)
  - Carpal tunnel syndrome [Recovered/Resolved]
